FAERS Safety Report 7096420-X (Version None)
Quarter: 2010Q4

REPORT INFORMATION
  Report Type: 
  Country: None (occurrence: None)
  Receive Date: 20101111
  Receipt Date: 20090916
  Transmission Date: 20110411
  Serious: No
  Sender: FDA-Public Use
  Company Number: US-KINGPHARMUSA00001-K200901141

PATIENT
  Age: 40 Year
  Sex: Female
  Weight: 54.422 kg

DRUGS (2)
  1. BICILLIN L-A [Suspect]
     Indication: LYME DISEASE
     Dosage: BIW, OFF-AND-ON
     Route: 030
     Dates: end: 20090901
  2. ANTIBIOTICS [Concomitant]
     Indication: LYME DISEASE

REACTIONS (1)
  - INJECTION SITE NODULE [None]
